FAERS Safety Report 10181432 (Version 2)
Quarter: 2014Q3

REPORT INFORMATION
  Report Type: Spontaneous
  Country: JP (occurrence: JP)
  Receive Date: 20140519
  Receipt Date: 20140702
  Transmission Date: 20150326
  Serious: No
  Sender: FDA-Public Use
  Company Number: JP-BRISTOL-MYERS SQUIBB COMPANY-20766085

PATIENT
  Age: 67 Year
  Sex: Male
  Weight: 51 kg

DRUGS (1)
  1. ERBITUX [Suspect]
     Active Substance: CETUXIMAB
     Indication: HYPOPHARYNGEAL CANCER
     Dosage: 250MG/M2 WEEKLY APR-2014 - 30-APR-2014
     Route: 041
     Dates: start: 20140408, end: 20140430

REACTIONS (1)
  - Stomatitis [Recovering/Resolving]

NARRATIVE: CASE EVENT DATE: 20140412
